FAERS Safety Report 9436461 (Version 2)
Quarter: 2013Q3

REPORT INFORMATION
  Report Type: Spontaneous
  Country: FR (occurrence: FR)
  Receive Date: 20130802
  Receipt Date: 20130812
  Transmission Date: 20140515
  Serious: Yes (Hospitalization)
  Sender: FDA-Public Use
  Company Number: FR-009507513-1307FRA013618

PATIENT
  Sex: Female
  Weight: 164 kg

DRUGS (1)
  1. REBETOL [Suspect]
     Indication: HEPATITIS C
     Dosage: UNK
     Route: 048
     Dates: start: 20130622

REACTIONS (4)
  - Depressed mood [Unknown]
  - Acne [Unknown]
  - Vulvovaginal pruritus [Unknown]
  - Anal pruritus [Unknown]
